FAERS Safety Report 9622651 (Version 2)
Quarter: 2013Q4

REPORT INFORMATION
  Report Type: Spontaneous
  Country: US (occurrence: None)
  Receive Date: 20131010
  Receipt Date: 20131010
  Transmission Date: 20140711
  Serious: Yes (Other)
  Sender: FDA-Public Use
  Company Number: 7239456

PATIENT
  Sex: Female
  Weight: 3.14 kg

DRUGS (2)
  1. LEVOTHYROXINE (LEVOTHYROXINE) [Suspect]
     Indication: BASEDOW^S DISEASE
     Dosage: PRODUCT TAKEN BY MOTHER
  2. PROPYLTHIOURACIL (PROPYLTHIOURACIL) [Suspect]
     Indication: TACHYCARDIA FOETAL
     Dosage: PRODUCT TAKEN BY MOTHER

REACTIONS (11)
  - Basedow^s disease [None]
  - Respiratory disorder [None]
  - Tachycardia foetal [None]
  - Premature baby [None]
  - Neonatal disorder [None]
  - Maternal drugs affecting foetus [None]
  - Cardiac failure congestive [None]
  - Neonatal respiratory failure [None]
  - Premature baby [None]
  - Stridor [None]
  - Exophthalmos [None]
